FAERS Safety Report 8618742-0 (Version None)
Quarter: 2012Q3

REPORT INFORMATION
  Report Type: 
  Country: None (occurrence: None)
  Receive Date: 20120824
  Receipt Date: 20111205
  Transmission Date: 20120928
  Serious: Yes (Other)
  Sender: FDA-Public Use
  Company Number: US-009507513-2011SP050631

PATIENT

DRUGS (13)
  1. VICTRELIS [Suspect]
     Indication: HEPATITIS C
     Dosage: 4 DF, TID
     Route: 048
     Dates: start: 20111001
  2. PEGASYS [Suspect]
     Indication: PRODUCT USED FOR UNKNOWN INDICATION
     Dosage: 180 MICROGRAM, UNK
     Route: 058
  3. PRAVASTATIN SODIUM [Concomitant]
     Dosage: 10 MG, UNK
     Route: 048
  4. AMBIEN [Concomitant]
     Dosage: 5 MG, UNK
     Route: 048
  5. PROZAC [Concomitant]
     Dosage: 10 MG, UNK
  6. VITAMIN D [Concomitant]
  7. TRAZODONE HCL [Concomitant]
     Dosage: 50 MG, UNK
     Route: 048
  8. CHOLECALCIFEROL [Concomitant]
     Dosage: 50000 UNITS
     Route: 048
  9. VICTRELIS [Suspect]
     Dosage: 200 MG, TID
  10. RIBAVIRIN [Suspect]
     Indication: PRODUCT USED FOR UNKNOWN INDICATION
     Dosage: 1000 MG, QD
     Route: 048
  11. LEVOXYL [Concomitant]
     Dosage: 100 MICROGRAM, UNK
     Route: 048
  12. EPOETIN ALFA [Concomitant]
     Dosage: 10000/ML
  13. NEUPOGEN [Concomitant]
     Dosage: 480/0.8

REACTIONS (8)
  - DYSPHONIA [None]
  - DEPRESSED MOOD [None]
  - WHITE BLOOD CELL COUNT DECREASED [None]
  - DYSPNOEA [None]
  - PRURITUS GENERALISED [None]
  - RED BLOOD CELL COUNT ABNORMAL [None]
  - COUGH [None]
  - FATIGUE [None]
